FAERS Safety Report 21942790 (Version 1)
Quarter: 2023Q1

REPORT INFORMATION
  Report Type: Report from Study
  Country: US (occurrence: US)
  Receive Date: 20230202
  Receipt Date: 20230202
  Transmission Date: 20230417
  Serious: No
  Sender: FDA-Public Use
  Company Number: US-BIOVITRUM-2023US01551

PATIENT
  Sex: Male
  Weight: 11 kg

DRUGS (11)
  1. SYNAGIS [Suspect]
     Active Substance: PALIVIZUMAB
     Indication: Antiviral prophylaxis
  2. CHILDRENS MOTRIN [Concomitant]
     Active Substance: IBUPROFEN
  3. ATROPINE SULFATE [Concomitant]
     Active Substance: ATROPINE SULFATE
  4. ROBINUL [Concomitant]
     Active Substance: GLYCOPYRROLATE
  5. ATIVAN [Concomitant]
     Active Substance: LORAZEPAM
  6. KEPPRA [Concomitant]
     Active Substance: LEVETIRACETAM
  7. CLONIDINE HYDROCHLORIDE [Concomitant]
     Active Substance: CLONIDINE HYDROCHLORIDE
  8. TYLENOL [Concomitant]
     Active Substance: ACETAMINOPHEN
  9. CHILDRENS PEDIA-LAX [Concomitant]
  10. PROBIOTICS NOS [Concomitant]
     Active Substance: PROBIOTICS NOS
  11. GABAPENTIN [Concomitant]
     Active Substance: GABAPENTIN

REACTIONS (1)
  - Rash [Unknown]
